FAERS Safety Report 4881313-6 (Version None)
Quarter: 2006Q1

REPORT INFORMATION
  Report Type: 
  Country: None (occurrence: None)
  Receive Date: 20060111
  Receipt Date: 20060111
  Transmission Date: 20060701
  Serious: No
  Sender: FDA-Public Use
  Company Number: None

PATIENT
  Age: 16 Year
  Sex: Male
  Weight: 91.6 kg

DRUGS (1)
  1. FEXOFENADINE TEVA [Suspect]
     Indication: RHINITIS ALLERGIC
     Dosage: 60 MG PO BID
     Route: 048
     Dates: start: 20050101

REACTIONS (1)
  - DRUG EFFECT DECREASED [None]
